FAERS Safety Report 6560500-5 (Version None)
Quarter: 2010Q1

REPORT INFORMATION
  Report Type: 
  Country: None (occurrence: None)
  Receive Date: 20100129
  Receipt Date: 20090918
  Transmission Date: 20100710
  Serious: No
  Sender: FDA-Public Use
  Company Number: US-ABBOTT-09P-163-0598813-00

PATIENT
  Sex: Female

DRUGS (2)
  1. HUMIRA [Suspect]
     Indication: DRUG USE FOR UNKNOWN INDICATION
     Dosage: MAR 24 2009,  ON AUG 19 SWITCHED TO PEN, FEVER, JOINT SWELLING AND JOINT PAIN
     Dates: start: 20090324, end: 20090819
  2. HUMIRA [Suspect]
     Dosage: SWITCHED TO SYRINGE
     Route: 058
     Dates: start: 20090819, end: 20090901

REACTIONS (4)
  - ARTHRALGIA [None]
  - JOINT SWELLING [None]
  - LUPUS-LIKE SYNDROME [None]
  - PYREXIA [None]
